FAERS Safety Report 8058552-9 (Version None)
Quarter: 2012Q1

REPORT INFORMATION
  Report Type: 
  Country: None (occurrence: None)
  Receive Date: 20120120
  Receipt Date: 20120113
  Transmission Date: 20120608
  Serious: Yes (Other)
  Sender: FDA-Public Use
  Company Number: JP-PFIZER INC-2012003672

PATIENT
  Age: 66 Year
  Sex: Male

DRUGS (1)
  1. MIGLITOL [Suspect]
     Dosage: UNK
     Route: 065

REACTIONS (1)
  - CHEST DISCOMFORT [None]
